FAERS Safety Report 10667992 (Version 1)
Quarter: 2014Q4

REPORT INFORMATION
  Report Type: Spontaneous
  Country: JP (occurrence: None)
  Receive Date: 20141218
  Receipt Date: 20141218
  Transmission Date: 20150529
  Serious: Yes (Hospitalization)
  Sender: FDA-Public Use
  Company Number: INT_00538_2014

PATIENT
  Age: 73 Year
  Sex: Male
  Weight: 59.8 kg

DRUGS (4)
  1. CISPLATIN. [Suspect]
     Active Substance: CISPLATIN
     Indication: OESOPHAGEAL CARCINOMA
     Dosage: PER DAY ON DAY 1 AND 29
     Route: 042
  2. RADIOTHERAPY [Concomitant]
     Active Substance: RADIATION THERAPY
  3. 5-FLUOROURACIL [Suspect]
     Active Substance: FLUOROURACIL
     Indication: OESOPHAGEAL CARCINOMA
     Dosage: BODY MASS INDEX PER DAY ON DAYS 1-4 AND DAYS 29-32
     Route: 042
  4. DEXAMETHASONE. [Concomitant]
     Active Substance: DEXAMETHASONE

REACTIONS (9)
  - Diabetic hyperosmolar coma [None]
  - Confusional state [None]
  - Heart rate increased [None]
  - Blood sodium increased [None]
  - Blood creatinine increased [None]
  - Haemoglobin decreased [None]
  - Platelet count decreased [None]
  - Blood chloride increased [None]
  - Blood urea increased [None]
